FAERS Safety Report 24139850 (Version 5)
Quarter: 2025Q3

REPORT INFORMATION
  Report Type: Report from Study
  Country: CA (occurrence: CA)
  Receive Date: 20240726
  Receipt Date: 20250829
  Transmission Date: 20251020
  Serious: Yes (Hospitalization)
  Sender: ABBVIE
  Company Number: CA-ABBVIE-5851502

PATIENT
  Age: 39 Year
  Sex: Female
  Weight: 45 kg

DRUGS (4)
  1. UPADACITINIB [Suspect]
     Active Substance: UPADACITINIB
     Indication: Colitis ulcerative
     Route: 048
     Dates: start: 20240713
  2. DESOGESTREL AND ETHINYL ESTRADIOL [Concomitant]
     Active Substance: DESOGESTREL\ETHINYL ESTRADIOL
     Indication: Contraception
     Route: 048
     Dates: start: 20230628
  3. PANTOPRAZOLE [Concomitant]
     Active Substance: PANTOPRAZOLE
     Indication: Prophylaxis
     Route: 048
     Dates: start: 20240621
  4. NIFEDIPINE [Concomitant]
     Active Substance: NIFEDIPINE
     Indication: Colitis ulcerative
     Dosage: DOSE UNIT: 1 APPLICATION
     Route: 061
     Dates: start: 20240530

REACTIONS (2)
  - Bartholinitis [Recovered/Resolved]
  - Hypokalaemia [Recovered/Resolved]

NARRATIVE: CASE EVENT DATE: 20240721
